FAERS Safety Report 6212897-3 (Version None)
Quarter: 2009Q2

REPORT INFORMATION
  Report Type: 
  Country: None (occurrence: None)
  Receive Date: 20090603
  Receipt Date: 20090522
  Transmission Date: 20091009
  Serious: Yes (Other)
  Sender: FDA-Public Use
  Company Number: ES-AVENTIS-200915493GDDC

PATIENT
  Age: 12 Year
  Sex: Male

DRUGS (1)
  1. MINURIN                            /00361901/ [Suspect]
     Route: 048
     Dates: start: 20090416, end: 20090419

REACTIONS (1)
  - OLIGURIA [None]
